FAERS Safety Report 18907891 (Version 3)
Quarter: 2021Q2

REPORT INFORMATION
  Report Type: Report from Study
  Country: US (occurrence: US)
  Receive Date: 20210218
  Receipt Date: 20210630
  Transmission Date: 20210717
  Serious: Yes (Other)
  Sender: FDA-Public Use
  Company Number: US-EMD SERONO-9215376

PATIENT
  Age: 63 Year
  Sex: Male

DRUGS (1)
  1. REBIF [Suspect]
     Active Substance: INTERFERON BETA-1A
     Indication: MULTIPLE SCLEROSIS
     Route: 058
     Dates: start: 20160711

REACTIONS (10)
  - Intervertebral disc protrusion [Not Recovered/Not Resolved]
  - Eye disorder [Not Recovered/Not Resolved]
  - Herpes zoster [Unknown]
  - Vision blurred [Not Recovered/Not Resolved]
  - Hypoaesthesia [Unknown]
  - Sciatica [Not Recovered/Not Resolved]
  - Muscle rupture [Not Recovered/Not Resolved]
  - Liver function test increased [Unknown]
  - Gait disturbance [Not Recovered/Not Resolved]
  - Scar [Not Recovered/Not Resolved]

NARRATIVE: CASE EVENT DATE: 202007
